FAERS Safety Report 20917894 (Version 1)
Quarter: 2022Q2

REPORT INFORMATION
  Report Type: Spontaneous
  Country: JP (occurrence: None)
  Receive Date: 20220606
  Receipt Date: 20220606
  Transmission Date: 20220721
  Serious: Yes (Other)
  Sender: FDA-Public Use
  Company Number: JP-VistaPharm, Inc.-VER202205-000482

PATIENT
  Sex: Female
  Weight: 1.81 kg

DRUGS (2)
  1. ACETAMINOPHEN\HYDROCODONE [Suspect]
     Active Substance: ACETAMINOPHEN\HYDROCODONE
     Indication: Procedural pain
     Dosage: 15 MG/KG (8 TIMES)
     Route: 065
  2. FENTANYL [Concomitant]
     Active Substance: FENTANYL
     Indication: Procedural pain
     Dosage: 0.5 MCG/KG/H
     Route: 065

REACTIONS (1)
  - Hyperbilirubinaemia [Recovered/Resolved]
